FAERS Safety Report 8499679-7 (Version None)
Quarter: 2012Q2

REPORT INFORMATION
  Report Type: 
  Country: None (occurrence: None)
  Receive Date: 20120629
  Receipt Date: 20120613
  Transmission Date: 20120825
  Serious: Yes (Life-Threatening, Hospitalization, Other)
  Sender: FDA-Public Use
  Company Number: 217829

PATIENT
  Age: 57 Year
  Sex: Male

DRUGS (1)
  1. INNOHEP [Suspect]
     Indication: HAEMODIALYSIS
     Dates: start: 20120101, end: 20120101

REACTIONS (9)
  - FLUID OVERLOAD [None]
  - CARDIAC ARREST [None]
  - HYPOXIA [None]
  - HAEMODIALYSIS [None]
  - RESPIRATORY DISTRESS [None]
  - FEELING COLD [None]
  - SINUS TACHYCARDIA [None]
  - BRONCHOSPASM [None]
  - ANAPHYLACTIC REACTION [None]
